FAERS Safety Report 13780337 (Version 1)
Quarter: 2017Q3

REPORT INFORMATION
  Report Type: Spontaneous
  Country: US (occurrence: US)
  Receive Date: 20170724
  Receipt Date: 20170724
  Transmission Date: 20171127
  Serious: No
  Sender: FDA-Public Use
  Company Number: US-SHIRE-US201713866

PATIENT

DRUGS (1)
  1. XIIDRA [Suspect]
     Active Substance: LIFITEGRAST
     Indication: PRODUCT USED FOR UNKNOWN INDICATION
     Dosage: 1 GTT, 2X/DAY:BID
     Route: 047
     Dates: start: 20170527

REACTIONS (6)
  - Abdominal discomfort [Unknown]
  - Instillation site pain [Unknown]
  - Feeling abnormal [Unknown]
  - Sinus disorder [Unknown]
  - Product container issue [Unknown]
  - Condition aggravated [Unknown]
